FAERS Safety Report 9028019 (Version 1)
Quarter: 2013Q1

REPORT INFORMATION
  Report Type: Spontaneous
  Country: RU (occurrence: RU)
  Receive Date: 20130123
  Receipt Date: 20130123
  Transmission Date: 20140127
  Serious: Yes (Hospitalization)
  Sender: FDA-Public Use
  Company Number: RU-AMGEN-RUSSP2013004346

PATIENT
  Age: 48 Year
  Sex: Female
  Weight: 70 kg

DRUGS (5)
  1. FILGRASTIM [Suspect]
     Indication: PRODUCT USED FOR UNKNOWN INDICATION
     Dosage: 43 MUG, QD
     Route: 065
     Dates: start: 20121128, end: 20130111
  2. RIBAVIRIN [Suspect]
     Indication: CHRONIC HEPATITIS C
     Dosage: 1000 MG, UNK
     Route: 065
     Dates: start: 20121031, end: 20130111
  3. SERTRALINE HYDROCHLORIDE [Suspect]
     Indication: PRODUCT USED FOR UNKNOWN INDICATION
     Dosage: 50 MG, UNK
     Route: 065
     Dates: start: 20121116, end: 20130111
  4. MIANSERIN HYDROCHLORIDE [Suspect]
     Indication: PRODUCT USED FOR UNKNOWN INDICATION
     Dosage: 15 MG, QD
     Route: 065
     Dates: start: 20121116, end: 20130111
  5. PEGINTERFERON ALFA-2A [Suspect]
     Indication: CHRONIC HEPATITIS C
     Dosage: 180 MUG, QWK
     Route: 058
     Dates: start: 20121031, end: 20130107

REACTIONS (1)
  - Toxic skin eruption [Recovered/Resolved]
